FAERS Safety Report 8139725-3 (Version None)
Quarter: 2012Q1

REPORT INFORMATION
  Report Type: 
  Country: None (occurrence: None)
  Receive Date: 20120215
  Receipt Date: 20120213
  Transmission Date: 20120608
  Serious: Yes (Death, Other)
  Sender: FDA-Public Use
  Company Number: PHHY2012TR006058

PATIENT
  Sex: Male
  Weight: 79 kg

DRUGS (4)
  1. INHIBACE [Concomitant]
     Indication: CARDIAC FAILURE
     Dosage: 2.5 MG, UNK
     Dates: start: 20060101
  2. TASIGNA [Suspect]
     Indication: CHRONIC MYELOID LEUKAEMIA
     Dosage: 800 MG/DAY
     Route: 048
     Dates: start: 20101124
  3. ALDACTONE [Concomitant]
     Indication: CARDIAC FAILURE
     Dosage: 50 MG, UNK
     Dates: start: 20060101
  4. BELOC [Concomitant]
     Indication: CARDIAC FAILURE
     Dosage: 50 MG, UNK
     Dates: start: 20060101

REACTIONS (3)
  - CARDIAC FAILURE [None]
  - EJECTION FRACTION DECREASED [None]
  - DYSPNOEA [None]
